FAERS Safety Report 5583660-1 (Version None)
Quarter: 2008Q1

REPORT INFORMATION
  Report Type: 
  Country: None (occurrence: None)
  Receive Date: 20080102
  Receipt Date: 20071217
  Transmission Date: 20080703
  Serious: Yes (Hospitalization)
  Sender: FDA-Public Use
  Company Number: 2007AD000126

PATIENT
  Age: 44 Year
  Sex: Male

DRUGS (2)
  1. CEPHALEXIN [Suspect]
     Indication: PENILE OEDEMA
  2. DOXYCYCLINE [Concomitant]

REACTIONS (6)
  - BACTERIAL INFECTION [None]
  - CHILLS [None]
  - DYSURIA [None]
  - PENILE INFECTION [None]
  - PYREXIA [None]
  - STREPTOCOCCAL INFECTION [None]
